FAERS Safety Report 23683239 (Version 1)
Quarter: 2024Q1

REPORT INFORMATION
  Report Type: Spontaneous
  Country: AT (occurrence: AT)
  Receive Date: 20240328
  Receipt Date: 20240328
  Transmission Date: 20240410
  Serious: Yes (Other)
  Sender: FDA-Public Use
  Company Number: AT-PFIZER INC-PV202400041116

PATIENT
  Age: 53 Year
  Sex: Female

DRUGS (2)
  1. LORLATINIB [Suspect]
     Active Substance: LORLATINIB
     Indication: Non-small cell lung cancer
     Dosage: 100 MG, DAILY
     Dates: start: 202010
  2. LORLATINIB [Suspect]
     Active Substance: LORLATINIB
     Dosage: 50 MG, DAILY
     Dates: start: 202303

REACTIONS (3)
  - Hypercholesterolaemia [Recovering/Resolving]
  - Carotid arteriosclerosis [Recovering/Resolving]
  - Carotid artery stenosis [Recovering/Resolving]

NARRATIVE: CASE EVENT DATE: 20200101
